FAERS Safety Report 24988685 (Version 1)
Quarter: 2025Q1

REPORT INFORMATION
  Report Type: Spontaneous
  Country: US (occurrence: US)
  Receive Date: 20250220
  Receipt Date: 20250220
  Transmission Date: 20250409
  Serious: No
  Sender: BRISTOL-MYERS SQUIBB COMPANY
  Company Number: US-BRISTOL-MYERS SQUIBB COMPANY-2025-025350

PATIENT
  Age: 9 Year
  Sex: Male
  Weight: 32.21 kg

DRUGS (37)
  1. REVLIMID [Suspect]
     Active Substance: LENALIDOMIDE
     Indication: Product used for unknown indication
     Route: 048
     Dates: start: 20250116
  2. LENALIDOMIDE [Suspect]
     Active Substance: LENALIDOMIDE
     Indication: Histiocytic sarcoma
     Route: 048
     Dates: start: 20250129
  3. LENALIDOMIDE [Suspect]
     Active Substance: LENALIDOMIDE
     Route: 048
     Dates: start: 20250214
  4. LENALIDOMIDE [Suspect]
     Active Substance: LENALIDOMIDE
     Route: 048
     Dates: start: 20250123
  5. LENALIDOMIDE DR. REDDY^S [Concomitant]
     Route: 048
     Dates: start: 20250123
  6. LENALIDOMIDE DR. REDDY^S [Concomitant]
     Route: 048
     Dates: start: 20250214
  7. DEXAMETHASONE [Concomitant]
     Active Substance: DEXAMETHASONE
  8. DEXAMETHASONE [Concomitant]
     Active Substance: DEXAMETHASONE
     Route: 048
     Dates: start: 20250116
  9. KINERET [Concomitant]
     Active Substance: ANAKINRA
  10. TYLENOL [Concomitant]
     Active Substance: ACETAMINOPHEN
  11. SULFAMETHOXAZOLE\TRIMETHOPRIM [Concomitant]
     Active Substance: SULFAMETHOXAZOLE\TRIMETHOPRIM
  12. POTASSIUM CHLORIDE [Concomitant]
     Active Substance: POTASSIUM CHLORIDE
  13. MELATONIN [Concomitant]
     Active Substance: MELATONIN
     Route: 048
  14. SERTRALINE [Concomitant]
     Active Substance: SERTRALINE HYDROCHLORIDE
  15. OXYCODONE HYDROCHLORIDE [Concomitant]
     Active Substance: OXYCODONE HYDROCHLORIDE
  16. HYDROCORTISONE [Concomitant]
     Active Substance: HYDROCORTISONE
  17. HYDROXYZINE [Concomitant]
     Active Substance: HYDROXYZINE HYDROCHLORIDE
  18. LIDOCAINE [Concomitant]
     Active Substance: LIDOCAINE
  19. ONDANSETRON HYDROCHLORIDE [Concomitant]
     Active Substance: ONDANSETRON HYDROCHLORIDE
  20. CEFTRIAXONE SODIUM [Concomitant]
     Active Substance: CEFTRIAXONE SODIUM
  21. SIMETHICONE (DIMETHICONE) [Concomitant]
     Active Substance: DIMETHICONE
  22. HEPARIN SODIUM [Concomitant]
     Active Substance: HEPARIN SODIUM
  23. SODIUM CHLORIDE [Concomitant]
     Active Substance: SODIUM CHLORIDE
  24. DIPHENHYDRAMINE [Concomitant]
     Active Substance: DIPHENHYDRAMINE
  25. OXYBUTYNIN CHLORIDE [Concomitant]
     Active Substance: OXYBUTYNIN CHLORIDE
  26. PREDNISONE [Concomitant]
     Active Substance: PREDNISONE
     Route: 048
  27. CETIRIZINE HCL [Concomitant]
     Active Substance: CETIRIZINE HYDROCHLORIDE
  28. ETOPOSIDE [Concomitant]
     Active Substance: ETOPOSIDE
  29. FAMOTIDINE [Concomitant]
     Active Substance: FAMOTIDINE
     Route: 048
  30. IFOSFAMIDE [Concomitant]
     Active Substance: IFOSFAMIDE
  31. SCOPOLAMINE [BUTYLSCOPOLAMINE BROMIDE] [Concomitant]
  32. PROCHLORPERAZINE [Concomitant]
     Active Substance: PROCHLORPERAZINE
  33. EPINEPHRINE PROFESSIONAL [Concomitant]
     Active Substance: EPINEPHRINE\ISOPROPYL ALCOHOL
  34. MESNA [Concomitant]
     Active Substance: MESNA
  35. MIDAZOLAM [Concomitant]
     Active Substance: MIDAZOLAM
  36. JAKAFI [Concomitant]
     Active Substance: RUXOLITINIB
     Dates: start: 20250214
  37. MECLIZINE HYDROCHLORIDE [Concomitant]
     Active Substance: MECLIZINE HYDROCHLORIDE
     Dates: start: 20250116

REACTIONS (1)
  - Off label use [Unknown]
